FAERS Safety Report 23241282 (Version 1)
Quarter: 2023Q4

REPORT INFORMATION
  Report Type: Spontaneous
  Country: KR (occurrence: KR)
  Receive Date: 20231129
  Receipt Date: 20231129
  Transmission Date: 20240110
  Serious: Yes (Other)
  Sender: FDA-Public Use
  Company Number: KR-AMGEN-KORSP2023210805

PATIENT

DRUGS (1)
  1. PROLIA [Suspect]
     Active Substance: DENOSUMAB
     Indication: Osteoporosis
     Dosage: UNK
     Route: 065

REACTIONS (9)
  - Kidney transplant rejection [Unknown]
  - Fracture [Unknown]
  - Vitamin D increased [Unknown]
  - Blood phosphorus decreased [Unknown]
  - Cardiovascular disorder [Unknown]
  - Arthralgia [Unknown]
  - Hypocalcaemia [Unknown]
  - Urinary tract infection [Unknown]
  - Blood calcium decreased [Unknown]
